FAERS Safety Report 9905902 (Version 2)
Quarter: 2014Q1

REPORT INFORMATION
  Report Type: Spontaneous
  Country: JP (occurrence: JP)
  Receive Date: 20140218
  Receipt Date: 20140225
  Transmission Date: 20141002
  Serious: Yes (Other)
  Sender: FDA-Public Use
  Company Number: JP-AMGEN-JPNSP2014011580

PATIENT
  Age: 78 Year
  Sex: Male

DRUGS (4)
  1. RANMARK [Suspect]
     Indication: METASTASES TO BONE
     Dosage: 120 MG, UNK
     Route: 058
     Dates: start: 20131214, end: 20131214
  2. ASPARA-CA [Concomitant]
     Dosage: UNK
     Route: 048
     Dates: start: 20131214
  3. LEUPLIN [Concomitant]
     Dosage: UNKNOWN
     Route: 065
  4. EDIROL [Concomitant]
     Route: 048

REACTIONS (1)
  - Hypocalcaemia [Recovering/Resolving]
